FAERS Safety Report 18967517 (Version 1)
Quarter: 2021Q1

REPORT INFORMATION
  Report Type: Other
  Country: US (occurrence: US)
  Receive Date: 20210303
  Receipt Date: 20210303
  Transmission Date: 20210420
  Serious: No
  Sender: FDA-Public Use
  Company Number: US-ROCHE-2774745

PATIENT
  Age: 39 Year
  Sex: Female
  Weight: 72.57 kg

DRUGS (4)
  1. COPAXONE [Concomitant]
     Active Substance: GLATIRAMER ACETATE
  2. TECFIDERA [Concomitant]
     Active Substance: DIMETHYL FUMARATE
  3. OCREVUS [Suspect]
     Active Substance: OCRELIZUMAB
     Indication: RELAPSING-REMITTING MULTIPLE SCLEROSIS
     Dosage: ONGOING : YES ?300MG ON DAY 1 AND DAY 14 LATER 600MG EVERY 6 MONTHS.
     Route: 042
  4. REBIF [Concomitant]
     Active Substance: INTERFERON BETA-1A

REACTIONS (4)
  - Pyrexia [Not Recovered/Not Resolved]
  - COVID-19 [Recovered/Resolved]
  - Dehydration [Recovered/Resolved]
  - Asthenia [Not Recovered/Not Resolved]

NARRATIVE: CASE EVENT DATE: 20201224
